FAERS Safety Report 9746105 (Version 2)
Quarter: 2013Q4

REPORT INFORMATION
  Report Type: Spontaneous
  Country: US (occurrence: US)
  Receive Date: 20131211
  Receipt Date: 20131211
  Transmission Date: 20140711
  Serious: Yes (Other)
  Sender: FDA-Public Use
  Company Number: US-BMSGILMSD-2009-0024141

PATIENT
  Sex: Male
  Weight: 63.5 kg

DRUGS (2)
  1. ATRIPLA [Suspect]
     Dates: start: 20031004, end: 20090723
  2. ZOLOFT [Concomitant]

REACTIONS (1)
  - Renal failure [Unknown]
